FAERS Safety Report 4996993-4 (Version None)
Quarter: 2006Q2

REPORT INFORMATION
  Report Type: 
  Country: None (occurrence: None)
  Receive Date: 20060505
  Receipt Date: 20060426
  Transmission Date: 20061013
  Serious: Yes (Death, Other)
  Sender: FDA-Public Use
  Company Number: US-SHR-03-004232

PATIENT
  Age: 58 Year
  Sex: Female
  Weight: 66.2 kg

DRUGS (11)
  1. BETASERON [Suspect]
     Indication: MULTIPLE SCLEROSIS
     Dosage: 8 MIU, EVERY 2D, SUBCUTANEOUS
     Route: 058
     Dates: start: 19980801
  2. PROCARDIA [Concomitant]
  3. VASOTEC [Concomitant]
  4. METOPROLOL SUCCINATE [Concomitant]
  5. CARDURA [Concomitant]
  6. CLONIDINE [Concomitant]
  7. MAXALT [Concomitant]
  8. CALAN - SLOW RELEASE [Concomitant]
  9. FIORICET [Concomitant]
  10. DITROPAN [Concomitant]
  11. SYNTHROID [Concomitant]

REACTIONS (2)
  - ASTHENIA [None]
  - SMALL CELL LUNG CANCER STAGE UNSPECIFIED [None]
